FAERS Safety Report 9029763 (Version 2)
Quarter: 2013Q2

REPORT INFORMATION
  Report Type: Report from Study
  Country: US (occurrence: US)
  Receive Date: 20130124
  Receipt Date: 20130507
  Transmission Date: 20140414
  Serious: Yes (Life-Threatening, Other)
  Sender: FDA-Public Use
  Company Number: PHEH2012US025749

PATIENT
  Age: 61 Year
  Sex: Female
  Weight: 77.98 kg

DRUGS (3)
  1. GILENYA [Suspect]
     Indication: MULTIPLE SCLEROSIS
     Dosage: 0.5 MG, QD
     Route: 048
     Dates: start: 201103, end: 201103
  2. METHADONE [Concomitant]
     Dosage: 10 MG, BID
  3. METHADONE [Concomitant]
     Dosage: 5 MG, TID

REACTIONS (4)
  - Blood pressure decreased [Recovered/Resolved]
  - Heart rate irregular [Recovered/Resolved]
  - Blood pressure increased [Not Recovered/Not Resolved]
  - Heart rate decreased [Recovered/Resolved]
